FAERS Safety Report 23388320 (Version 2)
Quarter: 2024Q1

REPORT INFORMATION
  Report Type: Spontaneous
  Country: US (occurrence: US)
  Receive Date: 20240110
  Receipt Date: 20240219
  Transmission Date: 20240410
  Serious: Yes (Other)
  Sender: FDA-Public Use
  Company Number: US-TEVA-VS-3136207

PATIENT

DRUGS (7)
  1. DEXAMETHASONE [Suspect]
     Active Substance: DEXAMETHASONE
     Indication: Lymphoma
     Dosage: DAILY ON DAY 2, 3 AND 4 OF EVERY 28 DAYS CYCLE. PART OF MODIFIED SMILE REGIMEN
     Route: 065
  2. MESNA [Concomitant]
     Active Substance: MESNA
     Indication: Chemotherapy side effect prophylaxis
     Route: 065
  3. LEUCOVORIN [Concomitant]
     Active Substance: LEUCOVORIN\LEUCOVORIN CALCIUM
     Indication: Chemotherapy side effect prophylaxis
     Route: 065
  4. ASPARAGINASE [Suspect]
     Active Substance: ASPARAGINASE
     Indication: Lymphoma
     Dosage: 2500 UNITS/M2 ON DAY 8 OF EVERY 28 DAYS CYCLE. PART OF MODIFIED SMILE REGIMEN, PEGYLATED-ASPARAGI...
     Route: 042
  5. IFOSFAMIDE [Suspect]
     Active Substance: IFOSFAMIDE
     Indication: Lymphoma
     Dosage: EVERY 28 DAYS CYCLE. PART OF MODIFIED SMILE REGIMEN
     Route: 050
  6. ETOPOSIDE [Suspect]
     Active Substance: ETOPOSIDE
     Indication: Lymphoma
     Dosage: ON DAY 2-4 OF EVERY 28 DAYS CYCLE. PART OF MODIFIED SMILE REGIMEN
     Route: 065
  7. METHOTREXATE [Suspect]
     Active Substance: METHOTREXATE
     Indication: Lymphoma
     Dosage: ON DAY 1 OF EVERY 28 DAYS CYCLE. PART OF MODIFIED SMILE REGIMEN
     Route: 065

REACTIONS (1)
  - Pancreatitis [Unknown]
